FAERS Safety Report 8418903-X (Version None)
Quarter: 2012Q2

REPORT INFORMATION
  Report Type: 
  Country: None (occurrence: None)
  Receive Date: 20120607
  Receipt Date: 20120514
  Transmission Date: 20120825
  Serious: Yes (Death, Other)
  Sender: FDA-Public Use
  Company Number: US-PURDUE-USA-2012-0083894

PATIENT
  Age: 28 Year
  Sex: Male

DRUGS (5)
  1. COCAINE [Suspect]
     Indication: PRODUCT USED FOR UNKNOWN INDICATION
  2. HYDROCODONE [Suspect]
     Indication: PRODUCT USED FOR UNKNOWN INDICATION
  3. HYDROMORPHONE HCL [Suspect]
     Indication: PRODUCT USED FOR UNKNOWN INDICATION
  4. VALIUM [Suspect]
     Indication: PRODUCT USED FOR UNKNOWN INDICATION
  5. HEROIN [Suspect]
     Indication: PRODUCT USED FOR UNKNOWN INDICATION

REACTIONS (2)
  - MULTIPLE DRUG OVERDOSE ACCIDENTAL [None]
  - TOXICITY TO VARIOUS AGENTS [None]
